FAERS Safety Report 5760860-9 (Version None)
Quarter: 2008Q2

REPORT INFORMATION
  Report Type: 
  Country: None (occurrence: None)
  Receive Date: 20080606
  Receipt Date: 20080529
  Transmission Date: 20081010
  Serious: Yes (Other)
  Sender: FDA-Public Use
  Company Number: CA-WYE-G01606008

PATIENT
  Sex: Female

DRUGS (2)
  1. EFFEXOR XR [Suspect]
     Indication: DEPRESSION
     Route: 048
  2. CLONAZEPAM [Concomitant]

REACTIONS (21)
  - AMNESIA [None]
  - ANGER [None]
  - BRAIN INJURY [None]
  - DEPRESSION [None]
  - DISSOCIATION [None]
  - DRUG INEFFECTIVE [None]
  - DRUG WITHDRAWAL SYNDROME [None]
  - DYSARTHRIA [None]
  - FEELING ABNORMAL [None]
  - FEELING OF DESPAIR [None]
  - FLAT AFFECT [None]
  - HEADACHE [None]
  - INFLUENZA LIKE ILLNESS [None]
  - INSOMNIA [None]
  - NIGHT SWEATS [None]
  - RESTLESS LEGS SYNDROME [None]
  - SOCIAL AVOIDANT BEHAVIOUR [None]
  - SUICIDAL IDEATION [None]
  - TREMOR [None]
  - VISUAL ACUITY REDUCED [None]
  - WEIGHT INCREASED [None]
